FAERS Safety Report 14649084 (Version 2)
Quarter: 2018Q1

REPORT INFORMATION
  Report Type: Report from Study
  Country: BR (occurrence: BR)
  Receive Date: 20180316
  Receipt Date: 20180316
  Transmission Date: 20180509
  Serious: Yes (Death)
  Sender: FDA-Public Use
  Company Number: PHHY2018BR043577

PATIENT
  Sex: Female
  Weight: 70 kg

DRUGS (3)
  1. ACLASTA [Suspect]
     Active Substance: ZOLEDRONIC ACID
     Indication: PAIN
     Dosage: 1 DF, UNK
     Route: 042
     Dates: start: 2016, end: 2016
  2. ACLASTA [Suspect]
     Active Substance: ZOLEDRONIC ACID
     Indication: ARTHRALGIA
  3. ACLASTA [Suspect]
     Active Substance: ZOLEDRONIC ACID
     Indication: OSTEOPOROSIS
     Dosage: 1 DF, UNK
     Route: 042

REACTIONS (3)
  - Device issue [Fatal]
  - Dysbacteriosis [Unknown]
  - Cardiac failure [Fatal]
